FAERS Safety Report 5264926-1 (Version None)
Quarter: 2007Q1

REPORT INFORMATION
  Report Type: 
  Country: None (occurrence: None)
  Receive Date: 20070314
  Receipt Date: 20070301
  Transmission Date: 20070707
  Serious: Yes (Hospitalization)
  Sender: FDA-Public Use
  Company Number: DE-AMGEN-UK204559

PATIENT
  Sex: Male
  Weight: 23 kg

DRUGS (3)
  1. NEUPOGEN [Suspect]
     Indication: CHEMOTHERAPY
     Route: 058
  2. AMPHO MORONAL [Concomitant]
     Route: 048
     Dates: start: 20060924
  3. KEPINOL [Concomitant]
     Route: 048
     Dates: start: 20060924

REACTIONS (8)
  - ABSCESS [None]
  - APPLICATION SITE VESICLES [None]
  - GAIT DISTURBANCE [None]
  - INDURATION [None]
  - INJECTION SITE ERYTHEMA [None]
  - INJECTION SITE OEDEMA [None]
  - INJECTION SITE PAIN [None]
  - INJECTION SITE REACTION [None]
